FAERS Safety Report 19997476 (Version 7)
Quarter: 2022Q3

REPORT INFORMATION
  Report Type: Report from Study
  Country: US (occurrence: US)
  Receive Date: 20211026
  Receipt Date: 20220701
  Transmission Date: 20221027
  Serious: Yes (Other)
  Sender: FDA-Public Use
  Company Number: US-NOVARTISTESTPH-NVSC2021US242790

PATIENT
  Age: 57 Year
  Sex: Female

DRUGS (9)
  1. ENTRESTO [Suspect]
     Active Substance: SACUBITRIL\VALSARTAN
     Indication: Cardiac failure
     Dosage: 1 DOSAGE FORM, BID (24/26 MG)
     Route: 048
     Dates: start: 20210718
  2. TORSEMIDE [Concomitant]
     Active Substance: TORSEMIDE
     Indication: Cardiac failure
     Dosage: 20 MG, QD
     Route: 048
     Dates: start: 2021
  3. TORSEMIDE [Concomitant]
     Active Substance: TORSEMIDE
     Dosage: 0.5 MG, QD (20 MG TO HALF A TABLET (10 MG))
     Route: 065
  4. METOPROLOL [Concomitant]
     Active Substance: METOPROLOL
     Indication: Product used for unknown indication
     Dosage: UNK
     Route: 048
  5. SPIRONOLACTONE [Concomitant]
     Active Substance: SPIRONOLACTONE
     Indication: Cardiac failure
     Dosage: UNK UNK, QD
     Route: 048
  6. XARELTO [Concomitant]
     Active Substance: RIVAROXABAN
     Indication: Blood disorder prophylaxis
     Dosage: UNK (TAKING SINCE 10 YEARS PRIOR TO ENTRESTO)
     Route: 065
  7. DIGOXIN [Concomitant]
     Active Substance: DIGOXIN
     Indication: Cardiac failure
     Dosage: UNK, QD
     Route: 048
     Dates: start: 2003
  8. CRESTOR [Concomitant]
     Active Substance: ROSUVASTATIN CALCIUM
     Indication: Product used for unknown indication
     Dosage: UNK (EVERY DAY)
     Route: 065
  9. ASPIRIN [Concomitant]
     Active Substance: ASPIRIN
     Indication: Product used for unknown indication
     Dosage: UNK (EVERY DAY)
     Route: 065

REACTIONS (16)
  - Cataract [Not Recovered/Not Resolved]
  - Visual impairment [Not Recovered/Not Resolved]
  - Dizziness [Not Recovered/Not Resolved]
  - Presyncope [Unknown]
  - Hypotension [Not Recovered/Not Resolved]
  - Urine odour abnormal [Not Recovered/Not Resolved]
  - Fibromyalgia [Recovering/Resolving]
  - Muscle spasms [Unknown]
  - Formication [Unknown]
  - Myalgia [Recovered/Resolved]
  - Heart rate increased [Unknown]
  - Seasonal allergy [Not Recovered/Not Resolved]
  - Heart rate decreased [Unknown]
  - Fatigue [Not Recovered/Not Resolved]
  - Blood creatinine increased [Unknown]
  - Cardioactive drug level decreased [Recovered/Resolved]

NARRATIVE: CASE EVENT DATE: 20210720
